FAERS Safety Report 19524722 (Version 1)
Quarter: 2021Q3

REPORT INFORMATION
  Report Type: Spontaneous
  Country: US (occurrence: US)
  Receive Date: 20210712
  Receipt Date: 20210712
  Transmission Date: 20211014
  Serious: Yes (Other)
  Sender: FDA-Public Use
  Company Number: US-ENDO PHARMACEUTICALS INC-2021-006185

PATIENT
  Age: 63 Year
  Sex: Female

DRUGS (4)
  1. ZANTAC [Suspect]
     Active Substance: RANITIDINE HYDROCHLORIDE
     Indication: DYSPEPSIA
     Dosage: UNK UNKNOWN, DAILY (UNTIL APPROX 2005, THEN OCCASIONALLY)
     Route: 065
     Dates: start: 198501, end: 201312
  2. RANITIDINE. [Suspect]
     Active Substance: RANITIDINE
     Indication: DYSPEPSIA
     Dosage: UNK UNKNOWN, DAILY (UNTIL APPROX 2005, THEN OCCASIONALLY)
     Route: 065
     Dates: start: 198501, end: 201312
  3. RANITIDINE HYDROCHLORIDE. [Suspect]
     Active Substance: RANITIDINE HYDROCHLORIDE
     Indication: DYSPEPSIA
     Dosage: UNK UNKNOWN, DAILY (UNTIL APPROX 2005, THEN OCCASIONALLY)
     Route: 065
     Dates: start: 198501, end: 201312
  4. ZANTAC [Suspect]
     Active Substance: RANITIDINE HYDROCHLORIDE
     Indication: DYSPEPSIA
     Dosage: UNK UNKNOWN, DAILY (UNTIL APPROX 2005, THEN OCCASIONALLY)
     Route: 065
     Dates: start: 198501, end: 201312

REACTIONS (2)
  - Skin cancer [Unknown]
  - Hepatic cancer [Unknown]

NARRATIVE: CASE EVENT DATE: 20131231
